FAERS Safety Report 18412958 (Version 4)
Quarter: 2021Q1

REPORT INFORMATION
  Report Type: Spontaneous
  Country: IT (occurrence: IT)
  Receive Date: 20201022
  Receipt Date: 20210128
  Transmission Date: 20210419
  Serious: Yes (Hospitalization, Other)
  Sender: FDA-Public Use
  Company Number: IT-AUROBINDO-AUR-APL-2020-052368

PATIENT
  Age: 65 Year
  Sex: Male

DRUGS (3)
  1. METFORMIN [Suspect]
     Active Substance: METFORMIN HYDROCHLORIDE
     Indication: DIABETES MELLITUS
  2. CANDESARTAN. [Concomitant]
     Active Substance: CANDESARTAN
     Indication: HYPERTENSION
     Dosage: UNK
     Route: 065
  3. METFORMIN [Suspect]
     Active Substance: METFORMIN HYDROCHLORIDE
     Indication: TYPE 2 DIABETES MELLITUS
     Dosage: 2500 MILLIGRAM, DAILY
     Route: 065

REACTIONS (8)
  - Renal artery thrombosis [Unknown]
  - Blood lactate dehydrogenase increased [Unknown]
  - Renal infarct [Recovered/Resolved]
  - Blood lactic acid increased [Recovered/Resolved]
  - Lactic acidosis [Unknown]
  - Abdominal pain [Recovered/Resolved]
  - Hypercreatininaemia [Recovered/Resolved]
  - Blood creatine increased [Unknown]
